FAERS Safety Report 20610185 (Version 1)
Quarter: 2022Q1

REPORT INFORMATION
  Report Type: Other
  Country: CN (occurrence: None)
  Receive Date: 20220318
  Receipt Date: 20220318
  Transmission Date: 20220423
  Serious: Yes (Hospitalization)
  Sender: FDA-Public Use
  Company Number: CN-ROCHE-3046662

PATIENT
  Age: 61 Year
  Sex: Male

DRUGS (7)
  1. BEVACIZUMAB [Suspect]
     Active Substance: BEVACIZUMAB
     Indication: Colon cancer metastatic
     Dosage: DAY1
     Route: 065
     Dates: start: 20180718
  2. XELODA [Suspect]
     Active Substance: CAPECITABINE
     Indication: Colon cancer metastatic
     Route: 048
     Dates: start: 201409, end: 201504
  3. XELODA [Suspect]
     Active Substance: CAPECITABINE
     Route: 048
     Dates: start: 2016
  4. XELODA [Suspect]
     Active Substance: CAPECITABINE
     Dosage: DAY1-14
     Route: 048
     Dates: start: 20180718
  5. OXALIPLATIN [Suspect]
     Active Substance: OXALIPLATIN
     Indication: Colon cancer metastatic
     Route: 042
     Dates: start: 201409, end: 201504
  6. OXALIPLATIN [Suspect]
     Active Substance: OXALIPLATIN
     Route: 042
     Dates: start: 2016
  7. OXALIPLATIN [Suspect]
     Active Substance: OXALIPLATIN
     Dosage: DAY1
     Route: 042
     Dates: start: 20180718

REACTIONS (2)
  - Hypoaesthesia [Unknown]
  - Anaphylactic shock [Unknown]

NARRATIVE: CASE EVENT DATE: 20180101
